FAERS Safety Report 4653186-8 (Version None)
Quarter: 2005Q2

REPORT INFORMATION
  Report Type: 
  Country: None (occurrence: None)
  Receive Date: 20050503
  Receipt Date: 20050330
  Transmission Date: 20051028
  Serious: Yes (Hospitalization)
  Sender: FDA-Public Use
  Company Number: F01200500489

PATIENT
  Age: 67 Year
  Sex: Male

DRUGS (3)
  1. STUDY CODE NOT BROKEN; ONE OF (CLOPIDOGREL) - TABLET - 75 MG [Suspect]
     Indication: ARTERIOPATHIC DISEASE
     Dosage: ONE OF 75 MG QD  ONE OF ORAL
     Route: 048
     Dates: start: 20041209, end: 20050120
  2. PLACEBO [Suspect]
  3. ACETYL SALICYLIC ACID USP BAT [Concomitant]

REACTIONS (9)
  - BARRETT'S OESOPHAGUS [None]
  - GASTRIC ULCER [None]
  - GASTRITIS [None]
  - HERNIA [None]
  - LYMPHADENOPATHY [None]
  - METASTASIS [None]
  - OESOPHAGEAL ULCER [None]
  - REFLUX OESOPHAGITIS [None]
  - UPPER GASTROINTESTINAL HAEMORRHAGE [None]
